FAERS Safety Report 7357029-3 (Version None)
Quarter: 2011Q1

REPORT INFORMATION
  Report Type: 
  Country: None (occurrence: None)
  Receive Date: 20110310
  Receipt Date: 20110310
  Transmission Date: 20110831
  Serious: No
  Sender: FDA-Public Use
  Company Number: None

PATIENT
  Age: 63 Year
  Sex: Male
  Weight: 87.1 kg

DRUGS (4)
  1. LISINOPRIL [Suspect]
     Dosage: LISINOPRIL 10 MG DAILY PO
     Route: 048
     Dates: start: 20110222, end: 20110301
  2. MULTI-VITAMIN [Concomitant]
  3. FISH OIL [Concomitant]
  4. LOVASTATIN [Concomitant]

REACTIONS (1)
  - PANCREATITIS ACUTE [None]
